FAERS Safety Report 6502047-8 (Version None)
Quarter: 2009Q4

REPORT INFORMATION
  Report Type: 
  Country: None (occurrence: None)
  Receive Date: 20091214
  Receipt Date: 20091203
  Transmission Date: 20100525
  Serious: Yes (Disabling)
  Sender: FDA-Public Use
  Company Number: OSCN-NO-0611S-0344

PATIENT
  Age: 58 Year
  Sex: Male
  Weight: 60 kg

DRUGS (10)
  1. OMNISCAN [Suspect]
     Indication: DRUG USE FOR UNKNOWN INDICATION
     Dosage: 40 ML, SINGLE DOSE, I.V.
     Route: 042
     Dates: start: 20050816, end: 20050816
  2. MULTIHANCE [Suspect]
     Indication: DRUG USE FOR UNKNOWN INDICATION
     Dosage: SINGLE DOSE; 30 ML, SINGLE DOSE; 40 ML, SINGLE DOSE; 40 ML, SINGLE DOSE
     Dates: start: 20030423, end: 20030423
  3. MULTIHANCE [Suspect]
     Indication: DRUG USE FOR UNKNOWN INDICATION
     Dosage: SINGLE DOSE; 30 ML, SINGLE DOSE; 40 ML, SINGLE DOSE; 40 ML, SINGLE DOSE
     Dates: start: 20030429, end: 20030429
  4. MULTIHANCE [Suspect]
     Indication: DRUG USE FOR UNKNOWN INDICATION
     Dosage: SINGLE DOSE; 30 ML, SINGLE DOSE; 40 ML, SINGLE DOSE; 40 ML, SINGLE DOSE
     Dates: start: 20040310, end: 20040310
  5. MULTIHANCE [Suspect]
     Indication: DRUG USE FOR UNKNOWN INDICATION
     Dosage: SINGLE DOSE; 30 ML, SINGLE DOSE; 40 ML, SINGLE DOSE; 40 ML, SINGLE DOSE
     Dates: start: 20040316, end: 20040316
  6. GABAPENTIN [Concomitant]
  7. PREDNISOLONE [Concomitant]
  8. AMITRIPTYLINE (SAROTEN) [Concomitant]
  9. TRAMADOL (TRADOLAN) [Concomitant]
  10. CYCLOSPORINE [Concomitant]

REACTIONS (7)
  - ARTERIOVENOUS FISTULA OPERATION [None]
  - ARTHRALGIA [None]
  - CARPAL TUNNEL DECOMPRESSION [None]
  - LARYNGEAL OEDEMA [None]
  - MUSCULOSKELETAL PAIN [None]
  - NEPHROGENIC SYSTEMIC FIBROSIS [None]
  - VASCULITIS [None]
